FAERS Safety Report 8464656-9 (Version None)
Quarter: 2012Q2

REPORT INFORMATION
  Report Type: 
  Country: None (occurrence: None)
  Receive Date: 20120620
  Receipt Date: 20120620
  Transmission Date: 20120825
  Serious: Yes (Life-Threatening, Hospitalization)
  Sender: FDA-Public Use
  Company Number: None

PATIENT
  Age: 85 Year
  Sex: Male
  Weight: 85.3 kg

DRUGS (11)
  1. CARVEDILOL [Concomitant]
  2. FISH OIL [Concomitant]
  3. PRADAXA [Suspect]
     Indication: ATRIAL FIBRILLATION
     Dosage: 150 MG TWICE DAILY PO
     Route: 048
  4. IRON [Concomitant]
  5. METFORMIN HCL [Concomitant]
  6. VITAMIN D [Concomitant]
  7. SIMVASTATIN [Concomitant]
  8. GLIMEPIRIDE [Concomitant]
  9. OXYBUTYNIN [Concomitant]
  10. VITAMIN B-12 [Concomitant]
  11. FUROSEMIDE [Concomitant]

REACTIONS (7)
  - DYSPNOEA EXERTIONAL [None]
  - SMALL INTESTINAL HAEMORRHAGE [None]
  - ASTHENIA [None]
  - MELAENA [None]
  - ABNORMAL FAECES [None]
  - DYSPNOEA [None]
  - HAEMOGLOBIN DECREASED [None]
